FAERS Safety Report 9642692 (Version 3)
Quarter: 2013Q4

REPORT INFORMATION
  Report Type: Spontaneous
  Country: US (occurrence: US)
  Receive Date: 20131024
  Receipt Date: 20131212
  Transmission Date: 20140711
  Serious: Yes (Hospitalization)
  Sender: FDA-Public Use
  Company Number: US-ROCHE-1292248

PATIENT
  Age: 82 Year
  Sex: Female
  Weight: 71.73 kg

DRUGS (4)
  1. RITUXAN [Suspect]
     Indication: MICROSCOPIC POLYANGIITIS
     Dosage: 375/ M SQUARED
     Route: 042
     Dates: start: 20131010, end: 20131106
  2. RITUXAN [Suspect]
     Indication: VASCULITIS
  3. COUMADIN [Concomitant]
     Route: 065
  4. WARFARIN [Concomitant]
     Indication: ATRIAL FIBRILLATION
     Route: 048
     Dates: start: 2012

REACTIONS (3)
  - Melaena [Unknown]
  - International normalised ratio increased [Unknown]
  - Gastrointestinal haemorrhage [Recovered/Resolved]
